FAERS Safety Report 21104405 (Version 1)
Quarter: 2022Q3

REPORT INFORMATION
  Report Type: Spontaneous
  Country: US (occurrence: None)
  Receive Date: 20220719
  Receipt Date: 20220719
  Transmission Date: 20221027
  Serious: Yes (Disabling)
  Sender: FDA-Public Use
  Company Number: None

PATIENT
  Age: 73 Year
  Sex: Female
  Weight: 74.25 kg

DRUGS (1)
  1. PAXLOVID [Suspect]
     Active Substance: NIRMATRELVIR\RITONAVIR
     Indication: COVID-19 treatment
     Dosage: OTHER QUANTITY : 1 PACKET;?FREQUENCY : TWICE A DAY;?
     Route: 048
     Dates: start: 20220719

REACTIONS (2)
  - Dysgeusia [None]
  - Nightmare [None]

NARRATIVE: CASE EVENT DATE: 20220719
